FAERS Safety Report 25589101 (Version 1)
Quarter: 2025Q3

REPORT INFORMATION
  Report Type: Spontaneous
  Country: US (occurrence: US)
  Receive Date: 20250722
  Receipt Date: 20250722
  Transmission Date: 20251021
  Serious: Yes (Other)
  Sender: COOPERSURGICAL
  Company Number: US-COOPERSURGICAL, INC.-2025CPS005512

PATIENT
  Age: 17 Year
  Sex: Female
  Weight: 74.83 kg

DRUGS (1)
  1. PARAGARD T 380A [Suspect]
     Active Substance: COPPER
     Indication: Contraception
     Route: 015
     Dates: start: 20150101

REACTIONS (13)
  - Endometrial ablation [Recovered/Resolved]
  - Reproductive complication associated with device [Unknown]
  - Complication of device removal [Recovered/Resolved]
  - Endometriosis [Unknown]
  - Sexual dysfunction [Unknown]
  - Emotional distress [Unknown]
  - Dysmenorrhoea [Recovered/Resolved]
  - Menstruation irregular [Recovered/Resolved]
  - Intermenstrual bleeding [Recovered/Resolved]
  - Pelvic pain [Recovered/Resolved]
  - Vaginal discharge [Unknown]
  - Device dislocation [Recovered/Resolved]
  - Menstrual disorder [Unknown]

NARRATIVE: CASE EVENT DATE: 20170101
